FAERS Safety Report 5915321-0 (Version None)
Quarter: 2008Q4

REPORT INFORMATION
  Report Type: 
  Country: None (occurrence: None)
  Receive Date: 20081010
  Receipt Date: 20081003
  Transmission Date: 20090506
  Serious: Yes (Hospitalization, Other)
  Sender: FDA-Public Use
  Company Number: CA-SANOFI-SYNTHELABO-F01200801537

PATIENT
  Sex: Male
  Weight: 78.2 kg

DRUGS (10)
  1. ZOPICLONE [Concomitant]
     Dosage: 7.5 MG
     Route: 065
     Dates: start: 20080804
  2. ACCUPRIL [Concomitant]
     Dosage: 40 MG
     Route: 065
  3. ALLOPURINOL [Concomitant]
     Dosage: 100 MG
     Route: 065
  4. BISOPROLOL [Concomitant]
     Dosage: 5 MG
     Route: 065
  5. ADALAT CC [Concomitant]
     Dosage: 60 MG
     Route: 065
  6. FLUOROURACIL [Suspect]
     Dosage: 4608 MG
     Route: 042
     Dates: start: 20080721, end: 20080916
  7. AVASTIN [Suspect]
     Dosage: 391 MG
     Route: 042
     Dates: start: 20080916, end: 20080916
  8. OXALIPLATIN [Suspect]
     Dosage: 192 MG
     Route: 042
     Dates: start: 20080916, end: 20080916
  9. SYMBICORT [Concomitant]
     Dosage: 200 MG
     Route: 065
     Dates: start: 20080718
  10. PRO-TRIAZIDE [Concomitant]
     Dosage: 50/25
     Route: 065

REACTIONS (1)
  - ILEAL ULCER [None]
